FAERS Safety Report 5819945-0 (Version None)
Quarter: 2008Q3

REPORT INFORMATION
  Report Type: 
  Country: None (occurrence: None)
  Receive Date: 20080717
  Receipt Date: 20080708
  Transmission Date: 20090109
  Serious: Yes (Other)
  Sender: FDA-Public Use
  Company Number: 2008AP001678

PATIENT
  Age: 40 Year
  Sex: Male

DRUGS (2)
  1. FLUVOXAMINE MALEATE [Suspect]
  2. THORAZINE [Suspect]

REACTIONS (6)
  - LEUKOCYTOSIS [None]
  - METABOLIC ACIDOSIS [None]
  - PYREXIA [None]
  - RENAL FAILURE ACUTE [None]
  - RHABDOMYOLYSIS [None]
  - SEROTONIN SYNDROME [None]
